FAERS Safety Report 20770100 (Version 1)
Quarter: 2022Q2

REPORT INFORMATION
  Report Type: Spontaneous
  Country: US (occurrence: None)
  Receive Date: 20220429
  Receipt Date: 20220429
  Transmission Date: 20220721
  Serious: No
  Sender: FDA-Public Use
  Company Number: None

PATIENT
  Age: 21 Year
  Sex: Female
  Weight: 58.6 kg

DRUGS (3)
  1. PROMACTA [Suspect]
     Active Substance: ELTROMBOPAG OLAMINE
     Indication: Immune thrombocytopenia
     Dosage: FREQUENCY : DAILY;?
     Route: 048
  2. TYLENOL [Concomitant]
  3. womens mutl vitamin + mineral [Concomitant]

REACTIONS (1)
  - Transient ischaemic attack [None]
